FAERS Safety Report 13176956 (Version 2)
Quarter: 2017Q3

REPORT INFORMATION
  Report Type: Report from Study
  Country: US (occurrence: US)
  Receive Date: 20170201
  Receipt Date: 20170731
  Transmission Date: 20171127
  Serious: No
  Sender: FDA-Public Use
  Company Number: US-EXELIXIS-CABO-16006763

PATIENT
  Sex: Male

DRUGS (17)
  1. L-GLUTAMINE [Concomitant]
  2. L-CARNITINE [Concomitant]
     Active Substance: LEVOCARNITINE
  3. VITAMIN B [Concomitant]
     Active Substance: VITAMIN B
  4. FERROUS SULFATE. [Concomitant]
     Active Substance: FERROUS SULFATE
  5. VITAMIN D3 [Concomitant]
     Active Substance: CHOLECALCIFEROL
  6. FLOMAX [Concomitant]
     Active Substance: TAMSULOSIN HYDROCHLORIDE
  7. LEVEMIR [Concomitant]
     Active Substance: INSULIN DETEMIR
  8. CABOMETYX [Suspect]
     Active Substance: CABOZANTINIB S-MALATE
     Dosage: 60 MG, QD
     Route: 048
     Dates: start: 2016
  9. NIFEDIPINE. [Concomitant]
     Active Substance: NIFEDIPINE
  10. SENOKOT-S [Concomitant]
     Active Substance: DOCUSATE SODIUM\SENNOSIDES
  11. MIRALAX [Concomitant]
     Active Substance: POLYETHYLENE GLYCOL 3350
  12. ALLOPURINOL. [Concomitant]
     Active Substance: ALLOPURINOL
  13. CHLORTHALIDONE. [Concomitant]
     Active Substance: CHLORTHALIDONE
  14. CABOMETYX [Suspect]
     Active Substance: CABOZANTINIB S-MALATE
     Indication: RENAL CANCER
     Dosage: 60 MG, QD
     Route: 048
     Dates: start: 20160621, end: 20160718
  15. FINASTERIDE. [Concomitant]
     Active Substance: FINASTERIDE
  16. CALCITRIOL. [Concomitant]
     Active Substance: CALCITRIOL
  17. COLACE [Concomitant]
     Active Substance: DOCUSATE SODIUM

REACTIONS (10)
  - Dry mouth [Unknown]
  - Dry skin [Unknown]
  - Muscle spasms [Unknown]
  - Dysgeusia [Unknown]
  - Lip pain [Unknown]
  - Dysphonia [Unknown]
  - Dry throat [Unknown]
  - Constipation [Not Recovered/Not Resolved]
  - Glossodynia [Unknown]
  - Lip dry [Unknown]
